FAERS Safety Report 6258788-3 (Version None)
Quarter: 2009Q3

REPORT INFORMATION
  Report Type: 
  Country: None (occurrence: None)
  Receive Date: 20090707
  Receipt Date: 20090630
  Transmission Date: 20100115
  Serious: Yes (Other)
  Sender: FDA-Public Use
  Company Number: DE-MERCK-0907DEU00006

PATIENT
  Age: 58 Year
  Sex: Female
  Weight: 119 kg

DRUGS (4)
  1. JANUMET [Suspect]
     Indication: TYPE 2 DIABETES MELLITUS
     Route: 048
     Dates: start: 20090612, end: 20090625
  2. METOPROLOL TARTRATE [Concomitant]
     Route: 065
  3. AMLODIPINE [Concomitant]
     Route: 065
  4. HYDROCHLOROTHIAZIDE AND RAMIPRIL [Concomitant]
     Route: 065

REACTIONS (4)
  - ASTHENIA [None]
  - DEPRESSION [None]
  - FEELING ABNORMAL [None]
  - SUICIDAL IDEATION [None]
